FAERS Safety Report 9377129 (Version 1)
Quarter: 2013Q3

REPORT INFORMATION
  Report Type: Spontaneous
  Country: US (occurrence: US)
  Receive Date: 20130701
  Receipt Date: 20130701
  Transmission Date: 20140515
  Serious: Yes (Hospitalization)
  Sender: FDA-Public Use
  Company Number: US-PFIZER INC-2013194379

PATIENT
  Age: 61 Year
  Sex: Female
  Weight: 68.03 kg

DRUGS (3)
  1. LYRICA [Suspect]
     Indication: FIBROMYALGIA
     Dosage: 75 MG, 2X/DAY
     Route: 048
     Dates: start: 2011, end: 201211
  2. LYRICA [Suspect]
     Indication: NEURALGIA
  3. GABAPENTIN [Suspect]
     Dosage: UNK

REACTIONS (2)
  - Back disorder [Unknown]
  - Feeling abnormal [Unknown]
